FAERS Safety Report 4717316-1 (Version None)
Quarter: 2005Q3

REPORT INFORMATION
  Report Type: 
  Country: None (occurrence: None)
  Receive Date: 20050719
  Receipt Date: 20050706
  Transmission Date: 20060218
  Serious: Yes (Other)
  Sender: FDA-Public Use
  Company Number: PHRM2005FR02033

PATIENT
  Age: 45 Year
  Sex: Female
  Weight: 60 kg

DRUGS (8)
  1. XELODA [Concomitant]
     Dosage: 4 TABS BID DURING 15 DAYS EVERY 3 WEEKS
     Route: 048
  2. SKENAN [Concomitant]
     Dosage: 300 MG, BID
     Route: 048
  3. ENDOTELON [Concomitant]
     Dosage: 150 MG, BID
     Route: 048
  4. KENZEN [Concomitant]
     Dosage: 1 DF, QD
     Route: 048
  5. PARIET [Concomitant]
     Dosage: 20 MG, QD
     Route: 048
  6. CLONAZEPAM [Concomitant]
     Dosage: 25 DRP, QD
     Route: 048
  7. DIALGIREX [Concomitant]
     Dosage: 2 DF, TID
     Route: 048
  8. ZOMETA [Suspect]
     Indication: METASTASES TO BONE
     Route: 042
     Dates: start: 20021010, end: 20050623

REACTIONS (3)
  - ASEPTIC NECROSIS BONE [None]
  - IMPAIRED HEALING [None]
  - TOOTH EXTRACTION [None]
